FAERS Safety Report 6327309-9 (Version None)
Quarter: 2009Q3

REPORT INFORMATION
  Report Type: 
  Country: None (occurrence: None)
  Receive Date: 20090825
  Receipt Date: 20090813
  Transmission Date: 20100115
  Serious: Yes (Life-Threatening)
  Sender: FDA-Public Use
  Company Number: RU-GENENTECH-288162

PATIENT
  Age: 68 Year
  Sex: Male

DRUGS (4)
  1. AVASTIN [Suspect]
     Indication: COLORECTAL CANCER METASTATIC
     Dosage: 5 MG/KG, 2/MONTH
     Route: 042
     Dates: start: 20080901, end: 20090401
  2. LEUCOVORIN CALCIUM [Suspect]
     Indication: COLORECTAL CANCER METASTATIC
     Route: 042
  3. FLUOROURACIL [Suspect]
     Indication: COLORECTAL CANCER METASTATIC
     Route: 042
  4. OXALIPLATIN [Concomitant]
     Indication: DRUG USE FOR UNKNOWN INDICATION

REACTIONS (1)
  - ATRIAL FIBRILLATION [None]
